FAERS Safety Report 4979253-7 (Version None)
Quarter: 2006Q2

REPORT INFORMATION
  Report Type: 
  Country: None (occurrence: None)
  Receive Date: 20060421
  Receipt Date: 20060419
  Transmission Date: 20061013
  Serious: Yes (Other)
  Sender: FDA-Public Use
  Company Number: 200612140EU

PATIENT
  Age: 67 Year
  Sex: Male

DRUGS (1)
  1. NICORETTE [Suspect]
     Dosage: 2MG SEE DOSAGE TEXT
     Route: 002
     Dates: start: 20041101

REACTIONS (3)
  - DEPENDENCE [None]
  - MEDICATION ERROR [None]
  - OVERDOSE [None]
